FAERS Safety Report 17939041 (Version 1)
Quarter: 2020Q2

REPORT INFORMATION
  Report Type: Report from Study
  Country: IN (occurrence: IN)
  Receive Date: 20200624
  Receipt Date: 20200624
  Transmission Date: 20200714
  Serious: Yes (Other)
  Sender: FDA-Public Use
  Company Number: IN-MYLANLABS-2020M1058312

PATIENT

DRUGS (1)
  1. DEXAMETHASONE. [Suspect]
     Active Substance: DEXAMETHASONE
     Indication: VERNAL KERATOCONJUNCTIVITIS
     Dosage: UNK
     Route: 061

REACTIONS (2)
  - Glaucomatous optic disc atrophy [Unknown]
  - Intentional product misuse [Unknown]
